FAERS Safety Report 9689841 (Version 1)
Quarter: 2013Q4

REPORT INFORMATION
  Report Type: Spontaneous
  Country: PH (occurrence: PH)
  Receive Date: 20131115
  Receipt Date: 20131115
  Transmission Date: 20140711
  Serious: Yes (Death, Other)
  Sender: FDA-Public Use
  Company Number: PH-MERCK-1311PHL005629

PATIENT
  Age: 84 Year
  Sex: Female

DRUGS (1)
  1. JANUVIA [Suspect]
     Dosage: UNK
     Route: 048
     Dates: start: 20121027

REACTIONS (3)
  - Diabetic complication [Fatal]
  - Liver disorder [Fatal]
  - Renal failure chronic [Fatal]
